FAERS Safety Report 17098763 (Version 1)
Quarter: 2019Q4

REPORT INFORMATION
  Report Type: Report from Study
  Country: US (occurrence: US)
  Receive Date: 20191202
  Receipt Date: 20191202
  Transmission Date: 20200122
  Serious: Yes (Hospitalization, Other)
  Sender: FDA-Public Use
  Company Number: US-GILEAD-2019-0439934

PATIENT
  Sex: Male

DRUGS (12)
  1. SINGULAIR [Concomitant]
     Active Substance: MONTELUKAST SODIUM
  2. ALBUTEROL SULFATE. [Concomitant]
     Active Substance: ALBUTEROL SULFATE
  3. TOBI [Concomitant]
     Active Substance: TOBRAMYCIN
  4. PREVACID [Concomitant]
     Active Substance: LANSOPRAZOLE
  5. CREON [Concomitant]
     Active Substance: PANCRELIPASE AMYLASE\PANCRELIPASE LIPASE\PANCRELIPASE PROTEASE
  6. AZTREONAM LYSINE [Suspect]
     Active Substance: AZTREONAM LYSINE
     Indication: CYSTIC FIBROSIS
     Dosage: 75 MG, TID CYCLE 28 DAYS ON AND 28 DAYS OFF
     Route: 055
  7. MULTIVITAMINS [VITAMINS NOS] [Concomitant]
     Active Substance: VITAMINS
  8. HYPERSAL [Concomitant]
     Active Substance: SODIUM CHLORIDE
  9. SYMDEKO [Concomitant]
     Active Substance: IVACAFTOR\TEZACAFTOR
  10. ADVAIR HFA [Concomitant]
     Active Substance: FLUTICASONE PROPIONATE\SALMETEROL XINAFOATE
  11. PULMOZYME [Concomitant]
     Active Substance: DORNASE ALFA
  12. AZITHROMYCIN ANHYDROUS. [Concomitant]
     Active Substance: AZITHROMYCIN ANHYDROUS

REACTIONS (1)
  - Cystic fibrosis [Not Recovered/Not Resolved]
